FAERS Safety Report 5221632-7 (Version None)
Quarter: 2007Q1

REPORT INFORMATION
  Report Type: 
  Country: None (occurrence: None)
  Receive Date: 20070129
  Receipt Date: 20070117
  Transmission Date: 20070707
  Serious: Yes (Hospitalization)
  Sender: FDA-Public Use
  Company Number: PHRM2007FR00574

PATIENT
  Age: 65 Year
  Sex: Female

DRUGS (4)
  1. TENORMIN [Suspect]
     Dosage: 100 MG, QD
     Route: 048
  2. TEMESTA [Suspect]
     Dosage: 2.5 MG, QD
     Route: 048
  3. ANAFRANIL [Suspect]
     Dosage: 25 MG, QD
     Route: 048
  4. NISISCO [Suspect]
     Indication: HYPERTENSION
     Route: 048

REACTIONS (1)
  - PULMONARY EMBOLISM [None]
